FAERS Safety Report 7692752-2 (Version None)
Quarter: 2011Q3

REPORT INFORMATION
  Report Type: 
  Country: None (occurrence: None)
  Receive Date: 20110819
  Receipt Date: 20110809
  Transmission Date: 20111222
  Serious: Yes (Other)
  Sender: FDA-Public Use
  Company Number: US-JNJFOC-20110806749

PATIENT
  Sex: Female
  Weight: 51.26 kg

DRUGS (2)
  1. UNKNOWN MEDICATION [Concomitant]
     Indication: GASTRIC DISORDER
     Route: 048
  2. FENTANYL [Suspect]
     Indication: BACK PAIN
     Dosage: NDC#0781-7240-55
     Route: 062
     Dates: start: 20100801

REACTIONS (8)
  - ABNORMAL LOSS OF WEIGHT [None]
  - INSOMNIA [None]
  - PRODUCT ADHESION ISSUE [None]
  - PRURITUS GENERALISED [None]
  - OSTEOPOROSIS [None]
  - HYPERPHAGIA [None]
  - DYSPHONIA [None]
  - BODY HEIGHT DECREASED [None]
